FAERS Safety Report 4312493-9 (Version None)
Quarter: 2004Q1

REPORT INFORMATION
  Report Type: 
  Country: None (occurrence: None)
  Receive Date: 20040303
  Receipt Date: 20040223
  Transmission Date: 20041129
  Serious: Yes (Hospitalization)
  Sender: FDA-Public Use
  Company Number: US-JNJFOC-20040105146

PATIENT
  Age: 55 Year
  Sex: Female

DRUGS (2)
  1. RISPERDAL [Suspect]
     Indication: PSYCHOTIC DISORDER
     Dosage: 1 MG, 1 IN 1 DAY, ORAL
     Route: 048
  2. HALDOL [Concomitant]

REACTIONS (2)
  - DRUG HYPERSENSITIVITY [None]
  - SHOCK [None]
